FAERS Safety Report 5562856-9 (Version None)
Quarter: 2007Q4

REPORT INFORMATION
  Report Type: 
  Country: None (occurrence: None)
  Receive Date: 20071217
  Receipt Date: 20071206
  Transmission Date: 20080405
  Serious: Yes (Hospitalization)
  Sender: FDA-Public Use
  Company Number: US-JNJFOC-20071202629

PATIENT
  Age: 58 Year
  Sex: Female
  Weight: 73.94 kg

DRUGS (3)
  1. ULTRAM [Suspect]
     Indication: ARTHRITIS
     Route: 048
  2. TYLENOL [Concomitant]
     Indication: ARTHRITIS
     Route: 048
  3. NEXIUM [Concomitant]
     Indication: GASTRIC DISORDER
     Route: 048

REACTIONS (1)
  - BREAST CANCER [None]
